FAERS Safety Report 9987106 (Version 1)
Quarter: 2014Q1

REPORT INFORMATION
  Report Type: Report from Study
  Country: US (occurrence: US)
  Receive Date: 20140307
  Receipt Date: 20140307
  Transmission Date: 20141002
  Serious: No
  Sender: FDA-Public Use
  Company Number: US-ABBVIE-13P-163-1081870-00

PATIENT
  Age: 18 Year
  Sex: Female

DRUGS (7)
  1. HUMIRA [Suspect]
     Indication: CROHN^S DISEASE
     Dates: start: 20130422
  2. LINESSA [Concomitant]
     Indication: CONTRACEPTION
  3. CENTRUM MULTIVITAMIN [Concomitant]
     Indication: PRODUCT USED FOR UNKNOWN INDICATION
     Dosage: DAILY
  4. FISH OIL [Concomitant]
     Indication: PRODUCT USED FOR UNKNOWN INDICATION
     Dosage: 2000 MG DAILY
  5. CALCIUM [Concomitant]
     Indication: PRODUCT USED FOR UNKNOWN INDICATION
  6. CULTURELLE [Concomitant]
     Indication: PRODUCT USED FOR UNKNOWN INDICATION
  7. AMOXICILLIN [Concomitant]
     Indication: OROPHARYNGEAL PAIN
     Dosage: FOR 10 DAYS - SORE THROAT NOW RESOLVED
     Dates: start: 20130416

REACTIONS (1)
  - Abdominal pain upper [Not Recovered/Not Resolved]
